FAERS Safety Report 8463728-2 (Version None)
Quarter: 2012Q2

REPORT INFORMATION
  Report Type: 
  Country: None (occurrence: None)
  Receive Date: 20120625
  Receipt Date: 20120619
  Transmission Date: 20120825
  Serious: Yes (Hospitalization)
  Sender: FDA-Public Use
  Company Number: PHHY2012FR053343

PATIENT
  Age: 80 Year
  Sex: Female

DRUGS (3)
  1. ZOLEDRONOC ACID [Suspect]
     Route: 042
  2. ZOLEDRONOC ACID [Suspect]
     Route: 042
  3. ZOLEDRONOC ACID [Suspect]
     Route: 042

REACTIONS (2)
  - FALL [None]
  - FEMUR FRACTURE [None]
